FAERS Safety Report 23048627 (Version 5)
Quarter: 2023Q4

REPORT INFORMATION
  Report Type: Report from Study
  Country: SE (occurrence: SE)
  Receive Date: 20231010
  Receipt Date: 20231122
  Transmission Date: 20240110
  Serious: Yes (Other)
  Sender: FDA-Public Use
  Company Number: SE-JNJFOC-20230666271

PATIENT
  Age: 53 Year
  Sex: Male

DRUGS (1)
  1. ESKETAMINE [Suspect]
     Active Substance: ESKETAMINE
     Indication: Depression
     Dosage: 56 MG, 23 DOSES
     Dates: start: 20230216, end: 20230620

REACTIONS (9)
  - Erectile dysfunction [Recovering/Resolving]
  - Body dysmorphic disorder [Recovered/Resolved]
  - Feeling abnormal [Recovered/Resolved]
  - Fall [Recovered/Resolved with Sequelae]
  - Back pain [Recovered/Resolved with Sequelae]
  - Arthralgia [Recovered/Resolved]
  - Contusion [Recovered/Resolved]
  - Hypertension [Not Recovered/Not Resolved]
  - Dissociation [Recovered/Resolved]

NARRATIVE: CASE EVENT DATE: 20230307
